FAERS Safety Report 8894159 (Version 1)
Quarter: 2012Q4

REPORT INFORMATION
  Report Type: 
  Country: US (occurrence: US)
  Receive Date: 20121107
  Receipt Date: 20121107
  Transmission Date: 20130627
  Serious: No
  Sender: FDA-Public Use
  Company Number: US-AMGEN-USASP2011059759

PATIENT
  Age: 50 Year
  Sex: Female

DRUGS (14)
  1. ENBREL [Suspect]
     Indication: PRODUCT USED FOR UNKNOWN INDICATION
     Dosage: 50 mg, qwk
     Route: 058
  2. CELEXA                             /00582602/ [Concomitant]
     Dosage: 10 mg, UNK
     Route: 048
  3. TRAZODONE [Concomitant]
     Dosage: 300 mg, UNK
     Route: 048
  4. LIPITOR [Concomitant]
     Dosage: 40 mg, UNK
     Route: 048
  5. GABAPENTIN [Concomitant]
     Dosage: 300 mg, UNK
     Route: 048
  6. VICODIN ES [Concomitant]
     Route: 048
  7. VITAMIN B COMPLEX              /00003501/ [Concomitant]
  8. VITAMIN D /00107901/ [Concomitant]
     Route: 048
  9. CALCIUM [Concomitant]
     Route: 048
  10. FISH OIL [Concomitant]
     Route: 048
  11. SUDAFED 12 HOUR [Concomitant]
     Dosage: 120 mg, UNK
     Route: 048
  12. MOTRIN IB [Concomitant]
     Dosage: 200 mg, UNK
     Route: 048
  13. PREDNISONE                         /00044702/ [Concomitant]
     Dosage: 10 mg, UNK
     Route: 048
  14. LEVOTHYROXIN [Concomitant]
     Dosage: 112 mug, UNK
     Route: 048

REACTIONS (1)
  - Night sweats [Recovered/Resolved]
